FAERS Safety Report 9843130 (Version 1)
Quarter: 2014Q1

REPORT INFORMATION
  Report Type: Spontaneous
  Country: CH (occurrence: CH)
  Receive Date: 20140124
  Receipt Date: 20140124
  Transmission Date: 20141002
  Serious: Yes (Other)
  Sender: FDA-Public Use
  Company Number: CH-CELGENEUS-151-50794-14012543

PATIENT
  Sex: 0

DRUGS (1)
  1. VIDAZA [Suspect]
     Indication: ACUTE MYELOID LEUKAEMIA
     Route: 065

REACTIONS (1)
  - Cytogenetic abnormality [Unknown]
